FAERS Safety Report 12518298 (Version 1)
Quarter: 2016Q2

REPORT INFORMATION
  Report Type: Other
  Country: US (occurrence: US)
  Receive Date: 20160630
  Receipt Date: 20160630
  Transmission Date: 20160815
  Serious: Yes (Other)
  Sender: FDA-Public Use
  Company Number: US-COL_23234_2016

PATIENT
  Age: 74 Year
  Sex: Female

DRUGS (1)
  1. COLGATE TOTAL FRESH MINT STRIPE [Suspect]
     Active Substance: SODIUM FLUORIDE\TRICLOSAN
     Indication: DENTAL DISORDER PROPHYLAXIS
     Dosage: HALF OF THE TOOTHBRUSH HEAD/TWO TO THREE TIMES A DAY/
     Route: 048
     Dates: start: 201606, end: 20160613

REACTIONS (9)
  - Activities of daily living impaired [Not Recovered/Not Resolved]
  - Weight decreased [Unknown]
  - Glossitis [Not Recovered/Not Resolved]
  - Stomatitis [Not Recovered/Not Resolved]
  - Sleep disorder [Not Recovered/Not Resolved]
  - Burning mouth syndrome [Not Recovered/Not Resolved]
  - Cheilitis [Not Recovered/Not Resolved]
  - Feeding disorder [None]
  - Gingival pain [Not Recovered/Not Resolved]

NARRATIVE: CASE EVENT DATE: 201606
